FAERS Safety Report 7829114-0 (Version None)
Quarter: 2011Q4

REPORT INFORMATION
  Report Type: 
  Country: None (occurrence: None)
  Receive Date: 20111020
  Receipt Date: 20111010
  Transmission Date: 20120403
  Serious: Yes (Other)
  Sender: FDA-Public Use
  Company Number: PHHY2011GB83000

PATIENT
  Age: 9 Month
  Sex: Female

DRUGS (5)
  1. MYCOPHENOLATE MOFETIL [Concomitant]
     Indication: WEGENER'S GRANULOMATOSIS
  2. AZATHIOPRINE [Concomitant]
     Indication: WEGENER'S GRANULOMATOSIS
     Dosage: UNK UKN, UNK
  3. CYCLOSPORINE [Suspect]
     Indication: WEGENER'S GRANULOMATOSIS
     Dosage: UNK UKN, UNK
  4. PREDNISOLONE [Concomitant]
     Dosage: 10 MG, QD
     Route: 048
  5. PREDNISOLONE [Concomitant]
     Indication: WEGENER'S GRANULOMATOSIS
     Dosage: 1 MG/KG, (UP TO 60 MG)
     Route: 048

REACTIONS (8)
  - FUNGAL SKIN INFECTION [None]
  - HEARING IMPAIRED [None]
  - URINARY TRACT INFECTION [None]
  - ORAL CANDIDIASIS [None]
  - WEGENER'S GRANULOMATOSIS [None]
  - INFERTILITY [None]
  - VULVOVAGINAL CANDIDIASIS [None]
  - DISEASE RECURRENCE [None]
